FAERS Safety Report 21436973 (Version 1)
Quarter: 2022Q4

REPORT INFORMATION
  Report Type: Spontaneous
  Country: US (occurrence: US)
  Receive Date: 20221010
  Receipt Date: 20221010
  Transmission Date: 20230112
  Serious: No
  Sender: FDA-Public Use
  Company Number: US-Kaleo, Inc.-2022KL000059

PATIENT
  Sex: Male

DRUGS (1)
  1. AUVI-Q [Suspect]
     Active Substance: EPINEPHRINE
     Indication: Anaphylactic reaction
     Route: 061
     Dates: start: 20220715, end: 20220715

REACTIONS (1)
  - Exposure via skin contact [Unknown]

NARRATIVE: CASE EVENT DATE: 20220715
